FAERS Safety Report 11877078 (Version 1)
Quarter: 2015Q4

REPORT INFORMATION
  Report Type: Spontaneous
  Country: JP (occurrence: JP)
  Receive Date: 20151229
  Receipt Date: 20151229
  Transmission Date: 20160305
  Serious: Yes (Hospitalization, Other)
  Sender: FDA-Public Use
  Company Number: JP-PFIZER INC-2015467234

PATIENT
  Age: 57 Year
  Sex: Female

DRUGS (8)
  1. PAROXETINE HYDROCHLORIDE. [Suspect]
     Active Substance: PAROXETINE HYDROCHLORIDE
     Dosage: 20 MG, UNK
     Route: 048
  2. BROMAZEPAM [Suspect]
     Active Substance: BROMAZEPAM
     Dosage: 12 MG, UNK
     Route: 048
  3. DISTIGMINE [Concomitant]
     Dosage: 5 MG, UNK
     Route: 048
  4. ESTAZOLAM. [Suspect]
     Active Substance: ESTAZOLAM
     Dosage: 1 MG, UNK
     Route: 048
  5. MIRTAZAPINE. [Suspect]
     Active Substance: MIRTAZAPINE
     Dosage: 15 MG, UNK
     Route: 048
  6. FLUNITRAZEPAM [Suspect]
     Active Substance: FLUNITRAZEPAM
     Dosage: 2 MG, UNK
     Route: 048
  7. ALPRAZOLAM. [Suspect]
     Active Substance: ALPRAZOLAM
     Dosage: 2.4 MG, UNK
     Route: 048
  8. ETHYL LOFLAZEPATE [Suspect]
     Active Substance: ETHYL LOFLAZEPATE
     Dosage: 2 MG, UNK
     Route: 048

REACTIONS (4)
  - Hypomania [Recovered/Resolved]
  - Obsessive thoughts [Recovered/Resolved]
  - Cognitive disorder [Recovered/Resolved]
  - Dyskinesia [Recovered/Resolved]
